FAERS Safety Report 9432866 (Version 1)
Quarter: 2013Q3

REPORT INFORMATION
  Report Type: Spontaneous
  Country: GB (occurrence: None)
  Receive Date: 20130729
  Receipt Date: 20130729
  Transmission Date: 20140515
  Serious: Yes (Other)
  Sender: FDA-Public Use
  Company Number: HRA-MET20130053

PATIENT
  Age: 36 Year
  Sex: Female

DRUGS (6)
  1. METYRAPONE [Suspect]
     Indication: CUSHING^S SYNDROME
     Dosage: 750 MG (250MG, 3 IN 1D)
     Dates: start: 20120912, end: 20120917
  2. SPRIONOLACTONE [Concomitant]
  3. DALTEPARIN [Concomitant]
  4. AMILORIDE [Concomitant]
  5. POTASSIUM CHLORIDE [Concomitant]
  6. THYROXINE [Concomitant]
     Indication: CUSHING^S SYNDROME
     Dosage: 750MG (250MG, 3 IN 1D)
     Dates: start: 20120912, end: 20120917

REACTIONS (2)
  - Flushing [None]
  - Loss of consciousness [None]
